FAERS Safety Report 9512995 (Version 2)
Quarter: 2014Q1

REPORT INFORMATION
  Report Type: Spontaneous
  Country: US (occurrence: None)
  Receive Date: 20130305
  Receipt Date: 20140306
  Transmission Date: 20141002
  Serious: Yes (Other)
  Sender: FDA-Public Use
  Company Number: 163-21880-12093157

PATIENT
  Age: 61 Year
  Sex: Male
  Weight: 95.26 kg

DRUGS (14)
  1. REVLIMID [Suspect]
     Indication: PLASMA CELL MYELOMA
     Dosage: 25 MG, 21 IN 21 D, PO
     Route: 048
     Dates: start: 20120813
  2. LIPITOR (ATORVASTATIN) [Concomitant]
  3. TRAMADOL HCL (TRAMADOL HYDROCHLORIDE) [Concomitant]
  4. LOTREL (LOTREL) [Concomitant]
  5. MAXZIDE (DYAZIDE) [Concomitant]
  6. CO Q10 (UBIDECARDENONE) [Concomitant]
  7. ASPIRIN (ACETYLSALICYLIC ACID) [Concomitant]
  8. CENTRUM (CENTRUM) (TABLETS) [Concomitant]
  9. COMBIGAN (COMBIGAN) [Concomitant]
  10. BENADRYL [Concomitant]
  11. GABAPENTIN (GABAPENTIN) [Concomitant]
  12. VALTREX (VALACICLOVIR HYDROCHLORIDE) [Concomitant]
  13. BACTRIM DS (BACTRIM) [Concomitant]
  14. AMLODIPINE (AMLODIPINE) [Concomitant]

REACTIONS (5)
  - Skin discolouration [None]
  - Constipation [None]
  - Rash pruritic [None]
  - Asthenia [None]
  - Dyspnoea exertional [None]
